FAERS Safety Report 8909216 (Version 1)
Quarter: 2012Q4

REPORT INFORMATION
  Report Type: Spontaneous
  Country: US (occurrence: None)
  Receive Date: 20121113
  Receipt Date: 20121113
  Transmission Date: 20130627
  Serious: Yes (Hospitalization)
  Sender: FDA-Public Use
  Company Number: None

PATIENT
  Age: 66 Year
  Sex: Male
  Weight: 77.8 kg

DRUGS (2)
  1. INSULIN [Suspect]
     Indication: DIABETES MELLITUS
     Dosage: ML EVERY DAY
     Dates: start: 20120619, end: 20121119
  2. INSULIN [Suspect]
     Dosage: ML  SQ
     Route: 058
     Dates: start: 20120619

REACTIONS (1)
  - Hypoglycaemia [None]
